FAERS Safety Report 7570024-4 (Version None)
Quarter: 2011Q2

REPORT INFORMATION
  Report Type: 
  Country: None (occurrence: None)
  Receive Date: 20110624
  Receipt Date: 20110617
  Transmission Date: 20111010
  Serious: Yes (Other)
  Sender: FDA-Public Use
  Company Number: IT-JNJFOC-20110609292

PATIENT
  Sex: Male

DRUGS (5)
  1. OLANZAPINE [Suspect]
     Indication: PRODUCT USED FOR UNKNOWN INDICATION
     Dosage: 2 TO 5 MG FOR 3 DAYS
     Route: 065
  2. INVEGA [Suspect]
     Dosage: FOR 7 DAYS
     Route: 048
  3. INVEGA [Suspect]
     Route: 048
  4. RISPERIDONE [Suspect]
     Indication: PRODUCT USED FOR UNKNOWN INDICATION
     Dosage: 2 TO 6 MG FOR 4 DAYS
     Route: 065
  5. INVEGA [Suspect]
     Indication: PSYCHOTIC DISORDER
     Dosage: FOR 13 DAYS
     Route: 048

REACTIONS (1)
  - PANCYTOPENIA [None]
